FAERS Safety Report 17055525 (Version 1)
Quarter: 2019Q4

REPORT INFORMATION
  Report Type: Spontaneous
  Country: US (occurrence: US)
  Receive Date: 20191120
  Receipt Date: 20191120
  Transmission Date: 20200122
  Serious: No
  Sender: FDA-Public Use
  Company Number: US-BAUSCH-BL-2019-058743

PATIENT
  Sex: Female
  Weight: 92.16 kg

DRUGS (3)
  1. CLINDA-T 1% CLINDAMYCIN [Suspect]
     Active Substance: CLINDAMYCIN PHOSPHATE
     Indication: LOCALISED INFECTION
     Dosage: 60 ML BOTTLE
     Route: 061
  2. AUGMENTIN [Concomitant]
     Active Substance: AMOXICILLIN\CLAVULANATE POTASSIUM
     Indication: PRODUCT USED FOR UNKNOWN INDICATION
  3. REMODULIN [Concomitant]
     Active Substance: TREPROSTINIL
     Indication: PULMONARY ARTERIAL HYPERTENSION
     Dosage: DOSE - 88 NG/KG/MIN, FREQUENCY: CONTINUOUS
     Route: 042
     Dates: start: 20180920

REACTIONS (3)
  - Chest pain [Unknown]
  - Dyspepsia [Unknown]
  - Vomiting [Unknown]
